FAERS Safety Report 6265989-7 (Version None)
Quarter: 2009Q3

REPORT INFORMATION
  Report Type: 
  Country: None (occurrence: None)
  Receive Date: 20090709
  Receipt Date: 20090709
  Transmission Date: 20100115
  Serious: No
  Sender: FDA-Public Use
  Company Number: None

PATIENT
  Age: 56 Year
  Sex: Female
  Weight: 57.6068 kg

DRUGS (2)
  1. MOVIPREP [Suspect]
     Indication: BOWEL PREPARATION
     Dosage: 1 LITER - IN 4- 8 OZ SERVINGS ONCE EVERY 12 HOUR PO
     Route: 048
     Dates: start: 20090707, end: 20090708
  2. MOVIPREP [Suspect]
     Indication: COLONOSCOPY
     Dosage: 1 LITER - IN 4- 8 OZ SERVINGS ONCE EVERY 12 HOUR PO
     Route: 048
     Dates: start: 20090707, end: 20090708

REACTIONS (4)
  - ABDOMINAL DISTENSION [None]
  - DYSPHAGIA [None]
  - RETCHING [None]
  - VOMITING [None]
